FAERS Safety Report 7049576-9 (Version None)
Quarter: 2010Q4

REPORT INFORMATION
  Report Type: 
  Country: None (occurrence: None)
  Receive Date: 20101012
  Receipt Date: 20100928
  Transmission Date: 20110411
  Serious: Yes (Hospitalization)
  Sender: FDA-Public Use
  Company Number: PR-001326

PATIENT
  Sex: Female
  Weight: 58 kg

DRUGS (1)
  1. KUVAN [Suspect]
     Indication: PHENYLKETONURIA
     Dosage: (1500 MG QD ORAL)
     Route: 048
     Dates: start: 20090519

REACTIONS (3)
  - HYSTERECTOMY [None]
  - INFECTION [None]
  - SALPINGO-OOPHORECTOMY UNILATERAL [None]
